FAERS Safety Report 15210797 (Version 2)
Quarter: 2018Q4

REPORT INFORMATION
  Report Type: Spontaneous
  Country: US (occurrence: US)
  Receive Date: 20180728
  Receipt Date: 20180730
  Transmission Date: 20190204
  Serious: Yes (Other)
  Sender: FDA-Public Use
  Company Number: US-ACCORD-069946

PATIENT
  Age: 65 Year
  Sex: Male

DRUGS (9)
  1. MERCAPTOPURINE/MERCAPTOPURINE ANHYDROUS [Suspect]
     Active Substance: MERCAPTOPURINE
     Indication: ACUTE PROMYELOCYTIC LEUKAEMIA
     Dosage: MAINTENANCE THERAPY - 50 MG DAILY
  2. FILGRASTIM [Concomitant]
     Active Substance: FILGRASTIM
     Indication: NEUTROPENIA
  3. GRANULOCYTE COLONY STIMULATING [Concomitant]
     Active Substance: GRANULOCYTE COLONY-STIMULATING FACTOR NOS
     Indication: NEUTROPENIA
  4. IDARUBICIN [Suspect]
     Active Substance: IDARUBICIN
     Indication: ACUTE PROMYELOCYTIC LEUKAEMIA
     Dosage: THREE CYCLES OF CONSOLIDATION
  5. CYTARABINE/CYTARABINE HYDROCHLORIDE/CYTARABINE OCFOSFATE [Suspect]
     Active Substance: CYTARABINE
     Indication: ACUTE PROMYELOCYTIC LEUKAEMIA
     Dosage: THREE CYCLES OF CONSOLIDATION
  6. METHOTREXATE. [Suspect]
     Active Substance: METHOTREXATE
     Indication: ACUTE PROMYELOCYTIC LEUKAEMIA
     Dosage: ALSO RECEIVED 12 MG
     Route: 037
  7. TRETINOIN/TRETINOIN TOCOFERIL [Suspect]
     Active Substance: TRETINOIN TOCOFERIL
     Indication: ACUTE PROMYELOCYTIC LEUKAEMIA
     Dosage: MAINTENANCE THERAPY - 50 MG BID
  8. MITOXANTRONE [Suspect]
     Active Substance: MITOXANTRONE HYDROCHLORIDE
     Indication: ACUTE PROMYELOCYTIC LEUKAEMIA
     Dosage: THREE CYCLES OF CONSOLIDATION
  9. ARSENIC [Suspect]
     Active Substance: ARSENIC
     Indication: ACUTE PROMYELOCYTIC LEUKAEMIA
     Dosage: 0.15 MG/KG DAILY

REACTIONS (5)
  - Subarachnoid haemorrhage [Recovered/Resolved]
  - Cytogenetic abnormality [Unknown]
  - Haematopoietic neoplasm [Recovered/Resolved]
  - Paraesthesia [Unknown]
  - Pancytopenia [Unknown]
